FAERS Safety Report 4704082-9 (Version None)
Quarter: 2005Q2

REPORT INFORMATION
  Report Type: 
  Country: None (occurrence: None)
  Receive Date: 20050630
  Receipt Date: 20050620
  Transmission Date: 20051028
  Serious: Yes (Hospitalization)
  Sender: FDA-Public Use
  Company Number: US-BRISTOL-MYERS SQUIBB COMPANY-13008271

PATIENT
  Age: 61 Year
  Sex: Female

DRUGS (9)
  1. COUMADIN [Suspect]
  2. SENSODYNE-F [Suspect]
     Indication: DENTAL CLEANING
     Route: 004
     Dates: start: 20030101
  3. ATENOLOL [Concomitant]
  4. RAMIPRIL [Concomitant]
  5. ATORVASTATIN CALCIUM [Concomitant]
  6. AMLODIPINE [Concomitant]
  7. ISOSORBIDE [Concomitant]
  8. PAROXETINE HCL [Concomitant]
  9. HYDROCHLOROTHIAZIDE [Concomitant]

REACTIONS (2)
  - HAEMATOMA [None]
  - OVARIAN CANCER [None]
